FAERS Safety Report 7603458-X (Version None)
Quarter: 2011Q3

REPORT INFORMATION
  Report Type: 
  Country: None (occurrence: None)
  Receive Date: 20110712
  Receipt Date: 20110706
  Transmission Date: 20111222
  Serious: Yes (Other)
  Sender: FDA-Public Use
  Company Number: US-PFIZER INC-2011112619

PATIENT
  Sex: Female
  Weight: 68.027 kg

DRUGS (1)
  1. EFFEXOR XR [Suspect]
     Indication: DEPRESSION
     Dosage: 225 MG, DAILY
     Route: 048
     Dates: start: 20040101, end: 20110501

REACTIONS (2)
  - SUICIDAL IDEATION [None]
  - BREAST CANCER FEMALE [None]
